FAERS Safety Report 15728940 (Version 1)
Quarter: 2018Q4

REPORT INFORMATION
  Report Type: Spontaneous
  Country: AR (occurrence: AR)
  Receive Date: 20181217
  Receipt Date: 20181217
  Transmission Date: 20190205
  Serious: Yes (Death, Other)
  Sender: FDA-Public Use
  Company Number: AR-009507513-1811ARG004459

PATIENT
  Age: 82 Year
  Sex: Male

DRUGS (1)
  1. KEYTRUDA [Suspect]
     Active Substance: PEMBROLIZUMAB
     Indication: NEUROENDOCRINE CARCINOMA OF THE SKIN
     Dosage: UNK
     Dates: start: 20181107, end: 20181107

REACTIONS (4)
  - Malignant neoplasm progression [Fatal]
  - Hepatic failure [Fatal]
  - Off label use [Unknown]
  - Feeling abnormal [Unknown]

NARRATIVE: CASE EVENT DATE: 2018
